FAERS Safety Report 20467673 (Version 4)
Quarter: 2022Q1

REPORT INFORMATION
  Report Type: Spontaneous
  Country: JP (occurrence: JP)
  Receive Date: 20220214
  Receipt Date: 20220310
  Transmission Date: 20220423
  Serious: Yes (Hospitalization)
  Sender: FDA-Public Use
  Company Number: JP-JNJFOC-20220209828

PATIENT
  Sex: Male

DRUGS (3)
  1. PALIPERIDONE PALMITATE [Suspect]
     Active Substance: PALIPERIDONE PALMITATE
     Indication: Schizophrenia
     Route: 030
     Dates: start: 2021
  2. PALIPERIDONE PALMITATE [Suspect]
     Active Substance: PALIPERIDONE PALMITATE
     Route: 030
     Dates: start: 2021
  3. PALIPERIDONE PALMITATE [Suspect]
     Active Substance: PALIPERIDONE PALMITATE

REACTIONS (2)
  - Schizophrenia [Unknown]
  - Therapeutic product effect incomplete [Recovering/Resolving]

NARRATIVE: CASE EVENT DATE: 20210101
